FAERS Safety Report 5501487-3 (Version None)
Quarter: 2007Q4

REPORT INFORMATION
  Report Type: 
  Country: None (occurrence: None)
  Receive Date: 20071019
  Receipt Date: 20070914
  Transmission Date: 20080405
  Serious: Yes (Other)
  Sender: FDA-Public Use
  Company Number: HQWYE220919SEP07

PATIENT
  Age: 65 Year
  Sex: Female
  Weight: 61.29 kg

DRUGS (4)
  1. ADVIL PM [Suspect]
     Indication: INSOMNIA
     Dosage: 1 TABLET 1X PER DAY 1 DAY, ORAL
     Route: 048
     Dates: start: 20070801, end: 20070101
  2. ADVIL PM [Suspect]
     Indication: PAIN
     Dosage: 1 TABLET 1X PER DAY 1 DAY, ORAL
     Route: 048
     Dates: start: 20070801, end: 20070101
  3. THYROID TAB [Concomitant]
  4. VERAPAMIL [Concomitant]

REACTIONS (2)
  - ANXIETY [None]
  - PALPITATIONS [None]
